FAERS Safety Report 15622336 (Version 1)
Quarter: 2018Q4

REPORT INFORMATION
  Report Type: Other
  Country: US (occurrence: US)
  Receive Date: 20181115
  Receipt Date: 20181115
  Transmission Date: 20190205
  Serious: Yes (Hospitalization, Other)
  Sender: FDA-Public Use
  Company Number: US-MISSION PHARMACAL COMPANY-2058902

PATIENT
  Age: 39 Year
  Sex: Male

DRUGS (1)
  1. THIOLA [Suspect]
     Active Substance: TIOPRONIN
     Indication: CYSTINURIA
     Route: 048
     Dates: start: 20180906

REACTIONS (4)
  - Cerebral haemorrhage [Unknown]
  - Headache [Unknown]
  - Loss of consciousness [Unknown]
  - Renal failure [Unknown]
